FAERS Safety Report 23784761 (Version 1)
Quarter: 2024Q2

REPORT INFORMATION
  Report Type: Spontaneous
  Country: US (occurrence: US)
  Receive Date: 20240425
  Receipt Date: 20240425
  Transmission Date: 20240716
  Serious: Yes (Other)
  Sender: FDA-Public Use
  Company Number: US-FreseniusKabi-FK202406533

PATIENT
  Age: 66 Year
  Sex: Male

DRUGS (1)
  1. PROPOFOL [Suspect]
     Active Substance: PROPOFOL
     Indication: Sedative therapy

REACTIONS (5)
  - Hypoxia [Unknown]
  - Hypotension [Unknown]
  - Pulse absent [Unknown]
  - Right ventricular dysfunction [Unknown]
  - Haemodynamic instability [Unknown]
